FAERS Safety Report 11128300 (Version 1)
Quarter: 2015Q2

REPORT INFORMATION
  Report Type: Spontaneous
  Country: US (occurrence: None)
  Receive Date: 20150520
  Receipt Date: 20150520
  Transmission Date: 20150821
  Serious: Yes (Life-Threatening, Hospitalization)
  Sender: FDA-Public Use
  Company Number: None

PATIENT
  Age: 88 Year
  Sex: Male
  Weight: 136.08 kg

DRUGS (2)
  1. PHENTERMINE [Suspect]
     Active Substance: PHENTERMINE
  2. FENFLURAMINE [Suspect]
     Active Substance: FENFLURAMINE
     Indication: WEIGHT CONTROL
     Dosage: IN THE 1990^S

REACTIONS (2)
  - Aortic valve stenosis [None]
  - Cardiac failure congestive [None]

NARRATIVE: CASE EVENT DATE: 20150519
